FAERS Safety Report 19673390 (Version 1)
Quarter: 2021Q3

REPORT INFORMATION
  Report Type: Spontaneous
  Country: FR (occurrence: FR)
  Receive Date: 20210809
  Receipt Date: 20210809
  Transmission Date: 20211014
  Serious: Yes (Death, Other)
  Sender: FDA-Public Use
  Company Number: FR-AUROBINDO-AUR-APL-2021-033750

PATIENT
  Age: 20 Year
  Sex: Male

DRUGS (2)
  1. LOXAPINE SUCCINATE. [Suspect]
     Active Substance: LOXAPINE SUCCINATE
     Indication: PRODUCT USED FOR UNKNOWN INDICATION
     Dosage: UNK (KNOWN)
     Route: 065
     Dates: end: 202010
  2. TRAMADOL. [Suspect]
     Active Substance: TRAMADOL
     Indication: PRODUCT USED FOR UNKNOWN INDICATION
     Dosage: UNK (KNOWN)
     Route: 065
     Dates: end: 202010

REACTIONS (3)
  - Respiratory depression [Fatal]
  - Poisoning deliberate [Fatal]
  - Asphyxia [Fatal]
